FAERS Safety Report 5123928-6 (Version None)
Quarter: 2006Q3

REPORT INFORMATION
  Report Type: 
  Country: None (occurrence: None)
  Receive Date: 20060807
  Receipt Date: 20050808
  Transmission Date: 20061208
  Serious: Yes (Life-Threatening)
  Sender: FDA-Public Use
  Company Number: 142813USA

PATIENT
  Age: 30 Year
  Sex: Female

DRUGS (4)
  1. ETOPOSIDE [Suspect]
     Indication: OVARIAN CANCER
     Dates: start: 20050801
  2. CISPLATIN [Suspect]
  3. BLEOMYCIN [Suspect]
  4. BIRTH CONTROL (NOS) [Concomitant]

REACTIONS (2)
  - BRONCHOSPASM [None]
  - PETECHIAE [None]
